FAERS Safety Report 7676416 (Version 18)
Quarter: 2013Q4

REPORT INFORMATION
  Report Type: Spontaneous
  Country: US (occurrence: US)
  Receive Date: 20101119
  Receipt Date: 20131210
  Transmission Date: 20140711
  Serious: Yes (Life-Threatening, Hospitalization, Other)
  Sender: FDA-Public Use
  Company Number: US-US-EMD SERONO, INC.-7027539

PATIENT
  Age: 54 Year
  Sex: Female
  Weight: 86 kg

DRUGS (13)
  1. REBIF [Suspect]
     Indication: MULTIPLE SCLEROSIS
     Route: 058
     Dates: start: 20060705, end: 20101110
  2. REBIF [Suspect]
     Route: 058
     Dates: start: 20101122
  3. REBIF [Suspect]
     Route: 058
  4. PREDNISONE [Suspect]
     Indication: PREMEDICATION
  5. IBUPROFEN [Concomitant]
     Indication: PREMEDICATION
  6. ATENOLOL [Concomitant]
     Indication: HEART RATE IRREGULAR
     Dates: start: 1997
  7. ATENOLOL [Concomitant]
     Indication: PALPITATIONS
  8. VISTARIL [Concomitant]
     Indication: PREMEDICATION
  9. LEXAPRO [Concomitant]
     Indication: ANXIETY
     Dates: start: 2006
  10. LEXAPRO [Concomitant]
     Indication: DEPRESSION
  11. VITAMIN D WITH CALCIUM [Concomitant]
     Indication: ARTHRALGIA
     Dates: start: 2008
  12. KLONOPIN [Concomitant]
     Indication: ANXIETY
     Dates: start: 2006
  13. KLONOPIN [Concomitant]
     Indication: DEPRESSION

REACTIONS (28)
  - Appendicitis perforated [Recovered/Resolved]
  - Peritonitis [Recovered/Resolved]
  - Wound infection [Recovered/Resolved]
  - Scar [Recovered/Resolved]
  - Viral infection [Recovered/Resolved]
  - Yellow skin [Recovered/Resolved]
  - Fall [Unknown]
  - Back injury [Not Recovered/Not Resolved]
  - Diarrhoea [Recovered/Resolved]
  - Weight decreased [Unknown]
  - Blood cholesterol increased [Unknown]
  - High density lipoprotein decreased [Not Recovered/Not Resolved]
  - Blood triglycerides increased [Unknown]
  - Vitamin B12 decreased [Unknown]
  - Vitamin B12 increased [Recovered/Resolved]
  - Vitamin D decreased [Unknown]
  - Urinary tract infection [Recovered/Resolved]
  - Umbilical hernia [Unknown]
  - Malaise [Recovered/Resolved]
  - Hypothyroidism [Not Recovered/Not Resolved]
  - Pain [Not Recovered/Not Resolved]
  - Influenza like illness [Recovering/Resolving]
  - Fatigue [Unknown]
  - Injection site pain [Not Recovered/Not Resolved]
  - Injection site bruising [Unknown]
  - Injection site erythema [Not Recovered/Not Resolved]
  - Injection site pruritus [Not Recovered/Not Resolved]
  - Injection site swelling [Unknown]
